FAERS Safety Report 24294651 (Version 3)
Quarter: 2024Q3

REPORT INFORMATION
  Report Type: Report from Study
  Country: US (occurrence: US)
  Receive Date: 20240906
  Receipt Date: 20240917
  Transmission Date: 20241016
  Serious: Yes (Death, Hospitalization, Other)
  Sender: EXELIXIS
  Company Number: US-EXELIXIS-CABO-24080057

PATIENT
  Age: 86 Year
  Sex: Male

DRUGS (24)
  1. CABOMETYX [Suspect]
     Active Substance: CABOZANTINIB S-MALATE
     Indication: Metastatic renal cell carcinoma
     Dosage: 20 MG, QD
     Route: 048
     Dates: start: 20240708, end: 20240801
  2. CABOMETYX [Suspect]
     Active Substance: CABOZANTINIB S-MALATE
     Indication: Metastases to lung
  3. OPDIVO [Suspect]
     Active Substance: NIVOLUMAB
     Indication: Metastatic renal cell carcinoma
     Dosage: UNK
     Dates: start: 20240627
  4. OPDIVO [Suspect]
     Active Substance: NIVOLUMAB
     Indication: Metastases to lung
  5. TYLENOL [Concomitant]
     Active Substance: ACETAMINOPHEN
  6. NORVASC [Concomitant]
     Active Substance: AMLODIPINE BESYLATE
  7. ELIQUIS [Concomitant]
     Active Substance: APIXABAN
  8. LIPITOR [Concomitant]
     Active Substance: ATORVASTATIN CALCIUM
  9. COREG [Concomitant]
     Active Substance: CARVEDILOL
  10. CYMBALTA [Concomitant]
     Active Substance: DULOXETINE HYDROCHLORIDE
  11. INSPRA [Concomitant]
     Active Substance: EPLERENONE
  12. SYNTHROID [Concomitant]
     Active Substance: LEVOTHYROXINE SODIUM
  13. EMLA [Concomitant]
     Active Substance: LIDOCAINE\PRILOCAINE
  14. ATIVAN [Concomitant]
     Active Substance: LORAZEPAM
  15. MAGNESIUM [Concomitant]
     Active Substance: MAGNESIUM
  16. MIRTAZAPINE [Concomitant]
     Active Substance: MIRTAZAPINE
  17. VITAMINS [Concomitant]
     Active Substance: VITAMINS
  18. NARCAN [Concomitant]
     Active Substance: NALOXONE HYDROCHLORIDE
  19. ZOFRAN [Concomitant]
     Active Substance: ONDANSETRON HYDROCHLORIDE
  20. ROXICODONE [Concomitant]
     Active Substance: OXYCODONE HYDROCHLORIDE
  21. OXYGEN [Concomitant]
     Active Substance: OXYGEN
  22. GLYCOLAX [Concomitant]
     Active Substance: POLYETHYLENE GLYCOL 3350
  23. SENOKOT [Concomitant]
     Active Substance: SENNOSIDES
  24. FLOMAX [Concomitant]
     Active Substance: TAMSULOSIN HYDROCHLORIDE

REACTIONS (11)
  - Dysphagia [Unknown]
  - Suicide attempt [Recovered/Resolved]
  - Failure to thrive [Unknown]
  - Malignant neoplasm progression [Fatal]
  - Hypotension [Recovered/Resolved]
  - Dysgeusia [Not Recovered/Not Resolved]
  - Blood pressure increased [Unknown]
  - Lethargy [Unknown]
  - Anxiety [Unknown]
  - Dysstasia [Unknown]
  - Depression [Unknown]

NARRATIVE: CASE EVENT DATE: 20240731
